FAERS Safety Report 7993169-3 (Version None)
Quarter: 2011Q4

REPORT INFORMATION
  Report Type: 
  Country: None (occurrence: None)
  Receive Date: 20111219
  Receipt Date: 20110405
  Transmission Date: 20120403
  Serious: No
  Sender: FDA-Public Use
  Company Number: US-ASTRAZENECA-2008UW28808

PATIENT
  Age: 77 Year
  Sex: Female
  Weight: 65.3 kg

DRUGS (5)
  1. ATENOLOL [Concomitant]
  2. CRESTOR [Suspect]
     Indication: BLOOD CHOLESTEROL INCREASED
     Route: 048
     Dates: start: 20081214
  3. SYNTHROID [Concomitant]
  4. POTASSIUM CHLORIDE [Concomitant]
  5. LISINOPRIL [Concomitant]

REACTIONS (3)
  - BACK PAIN [None]
  - PAIN IN EXTREMITY [None]
  - APHONIA [None]
